FAERS Safety Report 4455064-6 (Version None)
Quarter: 2004Q3

REPORT INFORMATION
  Report Type: 
  Country: None (occurrence: None)
  Receive Date: 20040917
  Receipt Date: 20040831
  Transmission Date: 20050211
  Serious: No
  Sender: FDA-Public Use
  Company Number: US_0406103374

PATIENT
  Age: 81 Year
  Sex: Female

DRUGS (5)
  1. EVISTA [Suspect]
  2. FOSAMAX [Concomitant]
  3. MIACALCIN [Concomitant]
  4. ORTHO-PREFEST [Concomitant]
  5. CALCIUM AND VITAMIN [Concomitant]

REACTIONS (1)
  - HEADACHE [None]
